FAERS Safety Report 8416949-9 (Version None)
Quarter: 2012Q2

REPORT INFORMATION
  Report Type: 
  Country: None (occurrence: None)
  Receive Date: 20120606
  Receipt Date: 20120531
  Transmission Date: 20120825
  Serious: Yes (Other)
  Sender: FDA-Public Use
  Company Number: US-PFIZER INC-2012131886

PATIENT
  Sex: Female
  Weight: 74.83 kg

DRUGS (3)
  1. LIPITOR [Suspect]
     Indication: BLOOD CHOLESTEROL INCREASED
  2. LIPITOR [Suspect]
     Indication: LOW DENSITY LIPOPROTEIN INCREASED
     Dosage: 20 MG, 1X/DAY
     Route: 048
     Dates: start: 20120201, end: 20120523
  3. LIPITOR [Suspect]
     Indication: HIGH DENSITY LIPOPROTEIN ABNORMAL

REACTIONS (3)
  - ASPARTATE AMINOTRANSFERASE INCREASED [None]
  - SERUM SEROTONIN INCREASED [None]
  - ALANINE AMINOTRANSFERASE INCREASED [None]
